FAERS Safety Report 9292039 (Version 2)
Quarter: 2013Q2

REPORT INFORMATION
  Report Type: Spontaneous
  Country: US (occurrence: US)
  Receive Date: 20130516
  Receipt Date: 20130522
  Transmission Date: 20140414
  Serious: Yes (Death)
  Sender: FDA-Public Use
  Company Number: US-ROCHE-1224493

PATIENT
  Age: 66 Year
  Sex: Male

DRUGS (2)
  1. XELODA [Suspect]
     Indication: HEPATIC CANCER
     Route: 048
  2. XELODA [Suspect]
     Indication: COLON CANCER

REACTIONS (1)
  - Hepatic failure [Fatal]
